FAERS Safety Report 7207203-1 (Version None)
Quarter: 2010Q4

REPORT INFORMATION
  Report Type: 
  Country: None (occurrence: None)
  Receive Date: 20101217
  Receipt Date: 20101208
  Transmission Date: 20110411
  Serious: Yes (Other)
  Sender: FDA-Public Use
  Company Number: 023453

PATIENT
  Age: 41 Year
  Sex: Male

DRUGS (5)
  1. KEPPRA [Suspect]
     Dosage: (2.25 G, 1.25G AM+ 1G PM)
  2. IRBESARTAN [Concomitant]
  3. LANSOPRAZOLE [Concomitant]
  4. ALFACALCIDOL [Concomitant]
  5. BISOPROLOL [Concomitant]

REACTIONS (3)
  - CONVULSION [None]
  - RENAL FAILURE CHRONIC [None]
  - STRESS AT WORK [None]
